FAERS Safety Report 5366777-6 (Version None)
Quarter: 2007Q2

REPORT INFORMATION
  Report Type: 
  Country: None (occurrence: None)
  Receive Date: 20070622
  Receipt Date: 20060929
  Transmission Date: 20071010
  Serious: No
  Sender: FDA-Public Use
  Company Number: US-ASTRAZENECA-2006UW19104

PATIENT
  Age: 12 Year
  Sex: Female
  Weight: 47.6 kg

DRUGS (2)
  1. RHINOCORT [Suspect]
     Indication: NASAL CONGESTION
     Dosage: TOOK ONE DOSE
     Route: 045
     Dates: start: 20060928
  2. ALBUTEROL [Concomitant]

REACTIONS (2)
  - PHARYNGOLARYNGEAL PAIN [None]
  - PYREXIA [None]
